FAERS Safety Report 23799872 (Version 1)
Quarter: 2024Q2

REPORT INFORMATION
  Report Type: Spontaneous
  Country: US (occurrence: None)
  Receive Date: 20240429
  Receipt Date: 20240429
  Transmission Date: 20240716
  Serious: Yes (Death)
  Sender: FDA-Public Use
  Company Number: None

PATIENT
  Sex: Male

DRUGS (3)
  1. DROXIDOPA [Suspect]
     Active Substance: DROXIDOPA
     Indication: Orthostatic hypotension
     Dosage: 600 MG 3 TIMES A DAY ORAL
     Route: 048
     Dates: start: 20220310
  2. FINASTERIDE [Concomitant]
     Active Substance: FINASTERIDE
  3. ENTACAPONE [Concomitant]
     Active Substance: ENTACAPONE

REACTIONS (1)
  - Death [None]
